FAERS Safety Report 9997753 (Version 1)
Quarter: 2014Q1

REPORT INFORMATION
  Report Type: Spontaneous
  Country: US (occurrence: US)
  Receive Date: 20140311
  Receipt Date: 20140311
  Transmission Date: 20141002
  Serious: No
  Sender: FDA-Public Use
  Company Number: US-PFIZER INC-2014066548

PATIENT
  Sex: 0

DRUGS (1)
  1. ADVIL ALLERGY AND CONGESTION RELIEF [Suspect]
     Indication: NASAL CONGESTION
     Dosage: UNK

REACTIONS (2)
  - Nasal dryness [Unknown]
  - Dry throat [Unknown]
